FAERS Safety Report 12769649 (Version 3)
Quarter: 2016Q4

REPORT INFORMATION
  Report Type: Report from Study
  Country: AU (occurrence: AU)
  Receive Date: 20160922
  Receipt Date: 20161010
  Transmission Date: 20170207
  Serious: Yes (Other)
  Sender: FDA-Public Use
  Company Number: AU-ROCHE-1833161

PATIENT
  Age: 72 Year
  Sex: Male

DRUGS (2)
  1. ACTEMRA [Suspect]
     Active Substance: TOCILIZUMAB
     Indication: RHEUMATOID ARTHRITIS
     Route: 042
     Dates: start: 20151106
  2. ACTEMRA [Suspect]
     Active Substance: TOCILIZUMAB
     Route: 042
     Dates: start: 20151209

REACTIONS (3)
  - Rectal cancer [Unknown]
  - Mass [Not Recovered/Not Resolved]
  - Diverticulum intestinal [Unknown]

NARRATIVE: CASE EVENT DATE: 20160914
